FAERS Safety Report 9276649 (Version 2)
Quarter: 2013Q3

REPORT INFORMATION
  Report Type: Report from Study
  Country: IE (occurrence: IE)
  Receive Date: 20130507
  Receipt Date: 20130816
  Transmission Date: 20140515
  Serious: Yes (Hospitalization)
  Sender: FDA-Public Use
  Company Number: IE-ALEXION PHARMACEUTICALS INC.-A201300951

PATIENT
  Age: 34 Year
  Sex: Male

DRUGS (3)
  1. SOLIRIS [Suspect]
     Indication: PAROXYSMAL NOCTURNAL HAEMOGLOBINURIA
     Dosage: 900 MG, Q2W
     Route: 042
     Dates: start: 20101221
  2. FOLIC ACID [Concomitant]
  3. ERYTHROMYCIN [Concomitant]
     Dosage: 500 MG, BID

REACTIONS (3)
  - Dyspnoea [Unknown]
  - Panic reaction [Unknown]
  - Chest pain [Unknown]
